FAERS Safety Report 7817165-1 (Version None)
Quarter: 2011Q4

REPORT INFORMATION
  Report Type: 
  Country: None (occurrence: None)
  Receive Date: 20111017
  Receipt Date: 20111017
  Transmission Date: 20120403
  Serious: Yes (Other)
  Sender: FDA-Public Use
  Company Number: None

PATIENT
  Age: 69 Year
  Sex: Male
  Weight: 88.45 kg

DRUGS (1)
  1. VANCOMYCIN HCL [Suspect]
     Indication: STAPHYLOCOCCAL INFECTION
     Dosage: VANCOMYCIN 2GM DAILY IV 2XD
     Route: 041
     Dates: start: 20110709, end: 20110812

REACTIONS (3)
  - HEMIPLEGIA [None]
  - HAEMORRHAGIC STROKE [None]
  - DIPLOPIA [None]
